FAERS Safety Report 14079573 (Version 1)
Quarter: 2017Q4

REPORT INFORMATION
  Report Type: Spontaneous
  Country: SE (occurrence: SE)
  Receive Date: 20171012
  Receipt Date: 20171012
  Transmission Date: 20180321
  Serious: Yes (Other)
  Sender: FDA-Public Use
  Company Number: SE-TEVA-814394ISR

PATIENT
  Age: 39 Year
  Sex: Female

DRUGS (2)
  1. SERTRALINE [Suspect]
     Active Substance: SERTRALINE HYDROCHLORIDE
     Route: 048
  2. FLUCONAZOL AUROBINDO [Concomitant]
     Route: 048

REACTIONS (2)
  - Drug interaction [Recovered/Resolved]
  - Vomiting [Recovered/Resolved]
